FAERS Safety Report 14694650 (Version 1)
Quarter: 2018Q1

REPORT INFORMATION
  Report Type: Other
  Country: US (occurrence: US)
  Receive Date: 20180329
  Receipt Date: 20180329
  Transmission Date: 20180509
  Serious: No
  Sender: FDA-Public Use
  Company Number: US--2017-US-000044

PATIENT
  Age: 30 Year
  Sex: Female

DRUGS (4)
  1. SULFUR. [Concomitant]
     Active Substance: SULFUR
     Indication: ACNE CONGLOBATA
     Route: 061
  2. METRONIDAZOLE TABLETS USP, 250 MG (VIVIMED) [Suspect]
     Active Substance: METRONIDAZOLE
     Indication: ACNE CONGLOBATA
     Route: 048
  3. PREDNISONE. [Concomitant]
     Active Substance: PREDNISONE
     Indication: ACNE CYSTIC
  4. SODIUM SULFACETAMIDE [Concomitant]
     Active Substance: SULFACETAMIDE SODIUM
     Indication: ACNE CONGLOBATA
     Route: 061

REACTIONS (3)
  - Maternal exposure during breast feeding [Unknown]
  - Exposure during pregnancy [Unknown]
  - Therapeutic response unexpected [Unknown]
